FAERS Safety Report 5950421-0 (Version None)
Quarter: 2008Q4

REPORT INFORMATION
  Report Type: 
  Country: None (occurrence: None)
  Receive Date: 20081112
  Receipt Date: 20081110
  Transmission Date: 20090506
  Serious: Yes (Other)
  Sender: FDA-Public Use
  Company Number: US-MERCK-0809USA03005

PATIENT
  Age: 9 Year
  Sex: Male
  Weight: 45 kg

DRUGS (5)
  1. SINGULAIR [Suspect]
     Indication: ASTHMA
     Route: 048
     Dates: start: 20060201, end: 20080601
  2. SINGULAIR [Suspect]
     Indication: RHINITIS ALLERGIC
     Route: 048
     Dates: start: 20060201, end: 20080601
  3. ALBUTEROL [Concomitant]
     Route: 065
  4. CLARITIN [Concomitant]
     Route: 065
  5. FLONASE [Concomitant]
     Route: 065

REACTIONS (2)
  - CRYING [None]
  - SUICIDAL IDEATION [None]
